FAERS Safety Report 24202598 (Version 2)
Quarter: 2024Q3

REPORT INFORMATION
  Report Type: Spontaneous
  Country: PL (occurrence: PL)
  Receive Date: 20240813
  Receipt Date: 20240821
  Transmission Date: 20241017
  Serious: Yes (Other)
  Sender: AUROBINDO
  Company Number: PL-AMGEN-POLSP2024146169

PATIENT
  Age: 67 Year
  Sex: Female

DRUGS (6)
  1. OXALIPLATIN [Suspect]
     Active Substance: OXALIPLATIN
     Indication: Colorectal cancer metastatic
     Dosage: UNK,M THE DOSE OF OXALIPLATIN WAS REDUCED TO 65
     Route: 065
     Dates: end: 20230816
  2. OXALIPLATIN [Suspect]
     Active Substance: OXALIPLATIN
     Dosage: UNK
     Route: 065
     Dates: start: 20211022
  3. FLUOROURACIL [Suspect]
     Active Substance: FLUOROURACIL
     Indication: Colorectal cancer metastatic
     Dosage: UNK
     Route: 065
     Dates: start: 20211022, end: 20230816
  4. LEUCOVORIN [Suspect]
     Active Substance: LEUCOVORIN\LEUCOVORIN CALCIUM
     Indication: Colorectal cancer metastatic
     Dosage: UNK
     Route: 065
     Dates: start: 20211022, end: 20230816
  5. PANITUMUMAB [Suspect]
     Active Substance: PANITUMUMAB
     Indication: Colorectal cancer metastatic
     Dosage: 6 MILLIGRAM/KILOGRAM, BODY WEIGHT
     Route: 065
     Dates: start: 20211022, end: 20230810
  6. VECTIBIX [Suspect]
     Active Substance: PANITUMUMAB
     Indication: Colorectal cancer metastatic
     Dosage: 6 MILLIGRAM/KILOGRAM (6 MILLIGRAM/KILOGRAM, Q2WK, BODY WEIGHT)
     Route: 065
     Dates: start: 20211022

REACTIONS (3)
  - Polyneuropathy [Unknown]
  - Disease progression [Unknown]
  - Rash pustular [Unknown]
